FAERS Safety Report 13822694 (Version 7)
Quarter: 2018Q1

REPORT INFORMATION
  Report Type: Report from Study
  Country: US (occurrence: US)
  Receive Date: 20170801
  Receipt Date: 20180122
  Transmission Date: 20180508
  Serious: Yes (Death, Hospitalization)
  Sender: FDA-Public Use
  Company Number: US-ACTELION-A-US2017-157284

PATIENT
  Age: 85 Year
  Sex: Female
  Weight: 84.81 kg

DRUGS (9)
  1. UPTRAVI [Suspect]
     Active Substance: SELEXIPAG
     Dosage: 400 MCG, BID
     Route: 048
     Dates: start: 20170726
  2. UPTRAVI [Suspect]
     Active Substance: SELEXIPAG
     Dosage: 1 TAB, BID
     Route: 048
  3. UPTRAVI [Suspect]
     Active Substance: SELEXIPAG
     Indication: PULMONARY ARTERIAL HYPERTENSION
     Dosage: 200 MCG, BID
     Route: 048
     Dates: start: 20170719
  4. LEVOTHYROXINE. [Concomitant]
     Active Substance: LEVOTHYROXINE
     Dosage: 88 MCG, UNK
  5. OXYGEN. [Concomitant]
     Active Substance: OXYGEN
  6. LEVOTHYROXINE. [Concomitant]
     Active Substance: LEVOTHYROXINE
     Dosage: 100 MCG, UNK
  7. OPSUMIT [Suspect]
     Active Substance: MACITENTAN
     Indication: PULMONARY ARTERIAL HYPERTENSION
     Dosage: 10 MG, QD
     Route: 048
     Dates: start: 20170616
  8. ADCIRCA [Suspect]
     Active Substance: TADALAFIL
     Indication: PRODUCT USED FOR UNKNOWN INDICATION
     Route: 065
  9. UPTRAVI [Suspect]
     Active Substance: SELEXIPAG
     Dosage: UNK
     Route: 048
     Dates: end: 20171019

REACTIONS (17)
  - Diarrhoea [Unknown]
  - Arthritis [Recovered/Resolved]
  - Dizziness [Recovering/Resolving]
  - Death [Fatal]
  - Loss of consciousness [Unknown]
  - Nasal congestion [Recovered/Resolved]
  - Pain [Recovered/Resolved]
  - Asthenia [Unknown]
  - Influenza [Recovering/Resolving]
  - Dehydration [Unknown]
  - Malaise [Unknown]
  - Throat irritation [Unknown]
  - Fatigue [Unknown]
  - Syncope [Unknown]
  - Hypokinesia [Recovering/Resolving]
  - Dyspnoea [Unknown]
  - Tremor [Recovered/Resolved]
